FAERS Safety Report 15562723 (Version 1)
Quarter: 2018Q4

REPORT INFORMATION
  Report Type: Spontaneous
  Country: US (occurrence: US)
  Receive Date: 20181029
  Receipt Date: 20181029
  Transmission Date: 20190205
  Serious: Yes (Hospitalization)
  Sender: FDA-Public Use
  Company Number: US-PFIZER INC-2018438393

PATIENT
  Age: 42 Year
  Sex: Female

DRUGS (11)
  1. XELJANZ XR [Suspect]
     Active Substance: TOFACITINIB CITRATE
     Indication: RHEUMATOID ARTHRITIS
     Dosage: 11 MG, DAILY (30^S)
     Dates: start: 2017, end: 2018
  2. SYNTHROID [Concomitant]
     Active Substance: LEVOTHYROXINE SODIUM
     Dosage: 50 UG, UNK
  3. CYCLOBENZAPRINE HCL [Concomitant]
     Active Substance: CYCLOBENZAPRINE HYDROCHLORIDE
     Dosage: 10 MG, UNK
  4. GABAPENTIN. [Concomitant]
     Active Substance: GABAPENTIN
     Dosage: 800 MG, UNK
  5. CORTEF [Concomitant]
     Active Substance: HYDROCORTISONE
     Dosage: 5 MG, UNK
  6. MS CONTIN [Concomitant]
     Active Substance: MORPHINE SULFATE
     Dosage: 15 MG, UNK
  7. LINZESS [Concomitant]
     Active Substance: LINACLOTIDE
     Dosage: 145 UG, UNK
  8. ESTRACE [Concomitant]
     Active Substance: ESTRADIOL
     Dosage: 2 MG, UNK
  9. PERCOCET [Concomitant]
     Active Substance: ACETAMINOPHEN\OXYCODONE HYDROCHLORIDE
     Dosage: (OXYCODONE HYDROCHLORIDE: 5MG/PARACETAMOL: 325MG)
  10. PROTONIX [Concomitant]
     Active Substance: PANTOPRAZOLE SODIUM
     Dosage: 40 MG, UNK
  11. CLONAZEPAM. [Concomitant]
     Active Substance: CLONAZEPAM
     Dosage: 0.5 MG, UNK

REACTIONS (4)
  - Clostridium difficile infection [Unknown]
  - Nasopharyngitis [Unknown]
  - Intestinal obstruction [Unknown]
  - Oropharyngeal pain [Unknown]

NARRATIVE: CASE EVENT DATE: 2018
